FAERS Safety Report 7905003-8 (Version None)
Quarter: 2011Q4

REPORT INFORMATION
  Report Type: 
  Country: None (occurrence: None)
  Receive Date: 20111109
  Receipt Date: 20111103
  Transmission Date: 20120403
  Serious: Yes (Death, Other)
  Sender: FDA-Public Use
  Company Number: PHEH2009US03631

PATIENT
  Sex: Male
  Weight: 78 kg

DRUGS (10)
  1. ALLOPURINOL [Concomitant]
  2. NEPHROCAPS [Concomitant]
  3. PREVACID [Concomitant]
  4. LIPITOR [Concomitant]
  5. COREG [Concomitant]
  6. AREDIA [Suspect]
  7. ZEMPLAR [Concomitant]
  8. HEPARIN [Concomitant]
  9. FLOMAX [Concomitant]
  10. PROSCAR [Concomitant]

REACTIONS (62)
  - SKIN CANCER [None]
  - FLUID OVERLOAD [None]
  - VENOUS OCCLUSION [None]
  - MONOCLONAL GAMMOPATHY [None]
  - MUSCULAR WEAKNESS [None]
  - SQUAMOUS CELL CARCINOMA [None]
  - OSTEONECROSIS OF JAW [None]
  - PAIN [None]
  - ARTHRALGIA [None]
  - RENAL CYST [None]
  - MYOCARDIAL INFARCTION [None]
  - IRON DEFICIENCY ANAEMIA [None]
  - HYPOTENSION [None]
  - CORONARY ARTERY DISEASE [None]
  - ANXIETY [None]
  - PLEURAL EFFUSION [None]
  - ATELECTASIS [None]
  - BUNDLE BRANCH BLOCK RIGHT [None]
  - NEPHROGENIC ANAEMIA [None]
  - GASTROOESOPHAGEAL REFLUX DISEASE [None]
  - INCREASED TENDENCY TO BRUISE [None]
  - LACERATION [None]
  - PALPITATIONS [None]
  - DYSPNOEA [None]
  - HYPOTHERMIA [None]
  - DISABILITY [None]
  - CARDIOMEGALY [None]
  - SLEEP APNOEA SYNDROME [None]
  - DIZZINESS [None]
  - STAPHYLOCOCCAL INFECTION [None]
  - INJURY [None]
  - MULTIPLE MYELOMA [None]
  - ATRIAL FIBRILLATION [None]
  - SUPRAVENTRICULAR TACHYCARDIA [None]
  - AORTIC ARTERIOSCLEROSIS [None]
  - HYPERTENSIVE HEART DISEASE [None]
  - RENAL OSTEODYSTROPHY [None]
  - VISUAL IMPAIRMENT [None]
  - WEIGHT DECREASED [None]
  - NEUROPATHY PERIPHERAL [None]
  - BACTERAEMIA [None]
  - ANHEDONIA [None]
  - HYPERTENSION [None]
  - ASCITES [None]
  - CLOSTRIDIUM DIFFICILE COLITIS [None]
  - PERIPHERAL VASCULAR DISORDER [None]
  - DEATH [None]
  - ACTINIC KERATOSIS [None]
  - SEBORRHOEIC KERATOSIS [None]
  - FALL [None]
  - RENAL FAILURE CHRONIC [None]
  - TONGUE NEOPLASM MALIGNANT STAGE UNSPECIFIED [None]
  - OEDEMA PERIPHERAL [None]
  - DEPRESSION [None]
  - DYSURIA [None]
  - JOINT SWELLING [None]
  - ARRHYTHMIA [None]
  - CARDIAC FAILURE CONGESTIVE [None]
  - HYPERLIPIDAEMIA [None]
  - CALCIUM METABOLISM DISORDER [None]
  - HYPOACUSIS [None]
  - STEAL SYNDROME [None]
